FAERS Safety Report 9242755 (Version 1)
Quarter: 2013Q2

REPORT INFORMATION
  Report Type: Spontaneous
  Country: IT (occurrence: FR)
  Receive Date: 20130419
  Receipt Date: 20130419
  Transmission Date: 20140414
  Serious: Yes (Hospitalization)
  Sender: FDA-Public Use
  Company Number: FR-FRI-1000044434

PATIENT
  Age: 84 Year
  Sex: Female

DRUGS (10)
  1. NEBIVOLOL [Suspect]
     Indication: CARDIAC FAILURE
     Dosage: 2.5 MG
     Route: 048
     Dates: start: 20121031, end: 20130114
  2. PREVISCAN [Suspect]
     Indication: THROMBOSIS PROPHYLAXIS
     Dosage: 20 MG
     Route: 048
     Dates: end: 20121221
  3. LOVENOX [Suspect]
     Indication: THROMBOSIS PROPHYLAXIS
     Dosage: 0.4 ML
     Route: 058
     Dates: start: 201209, end: 20121221
  4. CARDENSIEL [Suspect]
     Indication: CARDIAC FAILURE
     Dosage: 5 MG
     Route: 048
     Dates: end: 20121031
  5. CORDARONE [Suspect]
     Indication: CARDIAC FAILURE
     Route: 048
     Dates: end: 20130104
  6. ATACAND [Concomitant]
     Dosage: 4 MG
     Route: 048
  7. LYRICA [Concomitant]
     Dosage: 75 MG
  8. DEROXAT [Concomitant]
     Dosage: 10 MG
     Route: 048
  9. DIAMICRON [Concomitant]
     Dosage: 60 MG
     Route: 048
  10. TRANSIPEG [Concomitant]
     Indication: CONSTIPATION
     Route: 048

REACTIONS (5)
  - Bradycardia [Recovered/Resolved]
  - Fall [Recovered/Resolved]
  - Haematoma [Recovered/Resolved]
  - Anaemia [Recovered/Resolved]
  - Hypotension [Recovered/Resolved]
